FAERS Safety Report 6803447-9 (Version None)
Quarter: 2010Q2

REPORT INFORMATION
  Report Type: 
  Country: None (occurrence: None)
  Receive Date: 20100628
  Receipt Date: 20100617
  Transmission Date: 20101027
  Serious: Yes (Hospitalization)
  Sender: FDA-Public Use
  Company Number: JP-JNJFOC-20100507524

PATIENT
  Sex: Male

DRUGS (15)
  1. CRAVIT [Suspect]
     Indication: CYSTITIS
     Route: 048
  2. KETAS [Concomitant]
     Indication: DIZZINESS
     Route: 048
  3. LENDORMIN [Concomitant]
     Indication: INSOMNIA
  4. CYANOCOBALAMIN [Concomitant]
     Route: 048
  5. THEO-DUR [Concomitant]
     Indication: ASTHMA
  6. FLUTIDE [Concomitant]
     Indication: ASTHMA
     Route: 048
  7. SEREVENT [Concomitant]
     Indication: ASTHMA
     Route: 048
  8. PREDNISOLONE [Concomitant]
     Indication: PRURITUS
     Route: 048
  9. PREDNISOLONE [Concomitant]
     Indication: ASTHMA
     Route: 048
  10. GASTER [Concomitant]
     Indication: GASTRITIS
     Route: 048
  11. BLOPRESS [Concomitant]
     Indication: HYPERTENSION
     Route: 048
  12. LASIX [Concomitant]
     Indication: CARDIAC FAILURE
     Route: 048
  13. MAGNESIUM OXIDE [Concomitant]
     Indication: CONSTIPATION
     Route: 048
  14. MUCOSTA [Concomitant]
     Indication: GASTRITIS
     Route: 048
  15. FRANDOL [Concomitant]
     Indication: CARDIAC FAILURE
     Route: 062

REACTIONS (6)
  - ASTHENIA [None]
  - COORDINATION ABNORMAL [None]
  - DYSPHAGIA [None]
  - GAIT DISTURBANCE [None]
  - OVERDOSE [None]
  - TREMOR [None]
